FAERS Safety Report 21310218 (Version 2)
Quarter: 2022Q4

REPORT INFORMATION
  Report Type: Report from Study
  Country: US (occurrence: US)
  Receive Date: 20220909
  Receipt Date: 20221014
  Transmission Date: 20230112
  Serious: Yes (Hospitalization, Other)
  Sender: FDA-Public Use
  Company Number: US-NOVOPROD-954246

PATIENT
  Age: 80 Year
  Sex: Male

DRUGS (1)
  1. NOVOLOG [Suspect]
     Active Substance: INSULIN ASPART
     Indication: Diabetes mellitus
     Dosage: UNK
     Route: 058

REACTIONS (7)
  - Neuropathy peripheral [Not Recovered/Not Resolved]
  - Blood glucose increased [Recovered/Resolved]
  - Pancreatitis [Unknown]
  - Vomiting [Recovered/Resolved]
  - Ketoacidosis [Unknown]
  - Nerve injury [Recovered/Resolved with Sequelae]
  - Pain [Unknown]

NARRATIVE: CASE EVENT DATE: 20220101
